FAERS Safety Report 11918865 (Version 2)
Quarter: 2016Q3

REPORT INFORMATION
  Report Type: Spontaneous
  Country: US (occurrence: US)
  Receive Date: 20160115
  Receipt Date: 20160907
  Transmission Date: 20161109
  Serious: Yes (Hospitalization)
  Sender: FDA-Public Use
  Company Number: US-JNJFOC-20151205056

PATIENT
  Age: 39 Year
  Sex: Male
  Weight: 76.66 kg

DRUGS (7)
  1. LEVAQUIN [Suspect]
     Active Substance: LEVOFLOXACIN
     Indication: DYSURIA
     Route: 048
     Dates: start: 20060420
  2. LEVAQUIN [Suspect]
     Active Substance: LEVOFLOXACIN
     Indication: HAEMATURIA
     Route: 048
     Dates: start: 20060420
  3. LEVAQUIN [Suspect]
     Active Substance: LEVOFLOXACIN
     Indication: PROSTATITIS
     Route: 048
     Dates: start: 20030729
  4. LEVAQUIN [Suspect]
     Active Substance: LEVOFLOXACIN
     Indication: DYSURIA
     Route: 048
     Dates: start: 20030729
  5. LEVAQUIN [Suspect]
     Active Substance: LEVOFLOXACIN
     Indication: PROSTATITIS
     Route: 048
     Dates: start: 20060420
  6. LEVAQUIN [Suspect]
     Active Substance: LEVOFLOXACIN
     Indication: HAEMATURIA
     Route: 048
     Dates: start: 20030729
  7. CIPROFLOXACIN. [Suspect]
     Active Substance: CIPROFLOXACIN
     Indication: PRODUCT USED FOR UNKNOWN INDICATION
     Route: 065
     Dates: start: 20030712

REACTIONS (2)
  - Drug hypersensitivity [Unknown]
  - Neuropathy peripheral [Unknown]

NARRATIVE: CASE EVENT DATE: 200604
